FAERS Safety Report 6654905-1 (Version None)
Quarter: 2010Q1

REPORT INFORMATION
  Report Type: 
  Country: None (occurrence: None)
  Receive Date: 20100329
  Receipt Date: 20100318
  Transmission Date: 20100710
  Serious: Yes (Hospitalization)
  Sender: FDA-Public Use
  Company Number: US-BIOGENIDEC-2010BI009386

PATIENT
  Age: 49 Year
  Sex: Male
  Weight: 61 kg

DRUGS (10)
  1. TYSABRI [Suspect]
     Indication: MULTIPLE SCLEROSIS
     Route: 042
     Dates: start: 20080806
  2. BACLOFEN [Concomitant]
     Dates: start: 20060806
  3. COPAXONE [Concomitant]
     Dates: start: 20060106
  4. FOSAMAX [Concomitant]
     Dates: start: 20050101
  5. ATENOLOL [Concomitant]
     Dates: start: 20070701
  6. AMBIEN [Concomitant]
     Dates: start: 20070701
  7. FOLIC ACID [Concomitant]
     Dates: start: 20080401
  8. LOTREL [Concomitant]
     Dates: start: 20030101
  9. PRIMIDONE [Concomitant]
     Dates: start: 20080927
  10. DALAFAMPRIDINE [Concomitant]
     Indication: MULTIPLE SCLEROSIS
     Route: 048
     Dates: start: 20060713

REACTIONS (2)
  - ASTHENIA [None]
  - FALL [None]
